FAERS Safety Report 20412359 (Version 6)
Quarter: 2025Q2

REPORT INFORMATION
  Report Type: Report from Study
  Country: CA (occurrence: CA)
  Receive Date: 20220201
  Receipt Date: 20250527
  Transmission Date: 20250717
  Serious: Yes (Other)
  Sender: TAKEDA
  Company Number: CA-TAKEDA-2022TUS005744

PATIENT
  Age: 75 Year
  Sex: Female

DRUGS (8)
  1. VEDOLIZUMAB [Suspect]
     Active Substance: VEDOLIZUMAB
     Indication: Colitis ulcerative
  2. VEDOLIZUMAB [Suspect]
     Active Substance: VEDOLIZUMAB
  3. VEDOLIZUMAB [Suspect]
     Active Substance: VEDOLIZUMAB
  4. VEDOLIZUMAB [Suspect]
     Active Substance: VEDOLIZUMAB
  5. VEDOLIZUMAB [Suspect]
     Active Substance: VEDOLIZUMAB
  6. VEDOLIZUMAB [Suspect]
     Active Substance: VEDOLIZUMAB
  7. Salofalk [Concomitant]
  8. VITAMIN D [Concomitant]
     Active Substance: VITAMIN D NOS
     Dosage: UNK UNK, 1/WEEK

REACTIONS (13)
  - Haematochezia [Unknown]
  - Diarrhoea [Recovering/Resolving]
  - Rectal haemorrhage [Unknown]
  - Frequent bowel movements [Unknown]
  - Anal incontinence [Unknown]
  - Anorectal discomfort [Unknown]
  - Arthritis [Unknown]
  - Bone pain [Not Recovered/Not Resolved]
  - Haemorrhoids [Unknown]
  - Arthralgia [Unknown]
  - Acne [Recovering/Resolving]
  - Headache [Not Recovered/Not Resolved]
  - Pruritus [Recovering/Resolving]

NARRATIVE: CASE EVENT DATE: 20220124
